FAERS Safety Report 12849130 (Version 10)
Quarter: 2017Q1

REPORT INFORMATION
  Report Type: Report from Study
  Country: HK (occurrence: HK)
  Receive Date: 20161014
  Receipt Date: 20170320
  Transmission Date: 20170428
  Serious: Yes (Hospitalization)
  Sender: FDA-Public Use
  Company Number: HK-B.I. PHARMACEUTICALS,INC./RIDGEFIELD-2016-BI-066350

PATIENT
  Age: 65 Year
  Sex: Male
  Weight: 39.8 kg

DRUGS (9)
  1. AFATINIB [Suspect]
     Active Substance: AFATINIB
     Route: 048
     Dates: end: 20161209
  2. PEPCIDINE [Concomitant]
     Active Substance: FAMOTIDINE
     Indication: PROPHYLAXIS
     Route: 048
     Dates: start: 20161003, end: 20161005
  3. NEOMYCIN [Concomitant]
     Active Substance: NEOMYCIN
     Indication: PALMAR-PLANTAR ERYTHRODYSAESTHESIA SYNDROME
  4. PANADOL [Concomitant]
     Active Substance: ACETAMINOPHEN
     Indication: PAIN
     Route: 048
     Dates: start: 20161003, end: 20161013
  5. AFATINIB [Suspect]
     Active Substance: AFATINIB
     Route: 048
     Dates: end: 20161223
  6. AFATINIB [Suspect]
     Active Substance: AFATINIB
     Indication: NON-SMALL CELL LUNG CANCER
     Route: 048
     Dates: start: 20140404, end: 20161209
  7. BENZOYL PEROXIDE. [Concomitant]
     Active Substance: BENZOYL PEROXIDE
     Indication: RASH
     Route: 061
     Dates: start: 20140411
  8. NEOMYCIN [Concomitant]
     Active Substance: NEOMYCIN
     Indication: RASH
     Route: 061
     Dates: start: 20140411
  9. ZINACEF [Concomitant]
     Active Substance: CEFUROXIME SODIUM
     Indication: INFECTION PROPHYLAXIS
     Route: 042
     Dates: start: 20161003, end: 20161004

REACTIONS (8)
  - Metastases to lung [Recovered/Resolved]
  - Oedema peripheral [Recovered/Resolved]
  - Sepsis [Recovered/Resolved]
  - Hypotension [Recovered/Resolved]
  - Diarrhoea [Recovered/Resolved]
  - Pain [Recovered/Resolved]
  - Hypokalaemia [Recovered/Resolved]
  - Acute kidney injury [Recovered/Resolved]

NARRATIVE: CASE EVENT DATE: 20161003
